FAERS Safety Report 6228648-2 (Version None)
Quarter: 2009Q2

REPORT INFORMATION
  Report Type: 
  Country: None (occurrence: None)
  Receive Date: 20090612
  Receipt Date: 20090531
  Transmission Date: 20091009
  Serious: Yes (Other)
  Sender: FDA-Public Use
  Company Number: US-PFIZER INC-2009184568

PATIENT
  Sex: Female
  Weight: 72.562 kg

DRUGS (8)
  1. GEODON [Suspect]
     Indication: POST-TRAUMATIC STRESS DISORDER
     Dosage: PRN
     Route: 048
     Dates: start: 20030601
  2. GEODON [Suspect]
     Indication: BIPOLAR DISORDER
  3. GEODON [Suspect]
     Indication: ANXIETY
  4. VISTARIL [Concomitant]
     Dates: start: 20090301, end: 20090101
  5. ACETAMINOPHEN [Concomitant]
  6. THYROID TAB [Concomitant]
     Dosage: UNK
  7. NEURONTIN [Concomitant]
     Dosage: UNK
  8. AZITHROMYCIN [Concomitant]
     Dosage: UNK

REACTIONS (34)
  - ADVERSE EVENT [None]
  - ADVERSE REACTION [None]
  - ANGER [None]
  - ASTHENIA [None]
  - DIABETES INSIPIDUS [None]
  - DRY EYE [None]
  - EATING DISORDER [None]
  - FEELING HOT [None]
  - GASTROINTESTINAL CANDIDIASIS [None]
  - HYPOAESTHESIA [None]
  - INFLUENZA [None]
  - INTENTIONAL DRUG MISUSE [None]
  - MALAISE [None]
  - MEDICATION ERROR [None]
  - MIGRAINE [None]
  - MUSCLE TIGHTNESS [None]
  - NASAL DRYNESS [None]
  - NAUSEA [None]
  - OEDEMA MOUTH [None]
  - OEDEMA PERIPHERAL [None]
  - OSTEOARTHRITIS [None]
  - PAIN [None]
  - PNEUMONIA [None]
  - POLLAKIURIA [None]
  - PORPHYRIA [None]
  - PRURITUS [None]
  - PSYCHOTIC DISORDER [None]
  - RASH [None]
  - SLEEP DISORDER [None]
  - SOMNOLENCE [None]
  - SWELLING [None]
  - SYPHILIS [None]
  - THYROIDITIS [None]
  - WEIGHT INCREASED [None]
